FAERS Safety Report 7335005-4 (Version None)
Quarter: 2011Q1

REPORT INFORMATION
  Report Type: 
  Country: None (occurrence: None)
  Receive Date: 20110307
  Receipt Date: 20110225
  Transmission Date: 20110831
  Serious: Yes (Death)
  Sender: FDA-Public Use
  Company Number: AU-ROCHE-762533

PATIENT
  Sex: Male

DRUGS (3)
  1. CISPLATIN [Concomitant]
  2. HERCEPTIN [Suspect]
     Indication: GASTRIC CANCER
     Route: 065
  3. XELODA [Suspect]
     Route: 065

REACTIONS (1)
  - DEATH [None]
